FAERS Safety Report 6288686-0 (Version None)
Quarter: 2009Q3

REPORT INFORMATION
  Report Type: 
  Country: None (occurrence: None)
  Receive Date: 20090729
  Receipt Date: 20090727
  Transmission Date: 20100115
  Serious: Yes (Other)
  Sender: FDA-Public Use
  Company Number: US-TEVA-203697USA

PATIENT
  Age: 49 Year
  Sex: Female

DRUGS (3)
  1. METHOTREXATE TABLET 2.5MG [Suspect]
     Indication: RHEUMATOID ARTHRITIS
     Dosage: WEEKLY
  2. INFLIXIMAB [Suspect]
     Indication: RHEUMATOID ARTHRITIS
  3. SULFASALAZINE [Suspect]

REACTIONS (1)
  - MYCOBACTERIUM MARINUM INFECTION [None]
